FAERS Safety Report 14072556 (Version 2)
Quarter: 2018Q2

REPORT INFORMATION
  Report Type: Report from Study
  Country: CR (occurrence: CR)
  Receive Date: 20171011
  Receipt Date: 20180423
  Transmission Date: 20180711
  Serious: Yes (Death, Other)
  Sender: FDA-Public Use
  Company Number: PHHY2017CR133339

PATIENT
  Age: 76 Year
  Sex: Male
  Weight: 58 kg

DRUGS (16)
  1. MIDOSTAURIN [Suspect]
     Active Substance: MIDOSTAURIN
     Dosage: 1 DF, QD
     Route: 065
  2. BENADRYL [Concomitant]
     Active Substance: DIPHENHYDRAMINE HYDROCHLORIDE
     Indication: PRODUCT USED FOR UNKNOWN INDICATION
     Dosage: 25 MG, 1 AT BEDTIME
     Route: 065
  3. ENSURE ADVANCE [Concomitant]
     Indication: PRODUCT USED FOR UNKNOWN INDICATION
     Dosage: 4 DF, QD
     Route: 065
  4. VITAMIN C [Concomitant]
     Active Substance: ASCORBIC ACID
     Indication: PRODUCT USED FOR UNKNOWN INDICATION
     Dosage: 10 DRP, UNK
     Route: 065
  5. GABAPENTIN. [Concomitant]
     Active Substance: GABAPENTIN
     Indication: PRODUCT USED FOR UNKNOWN INDICATION
     Dosage: 300 MG, QD AT BEDTIME
     Route: 065
  6. MIDOSTAURIN [Suspect]
     Active Substance: MIDOSTAURIN
     Indication: SYSTEMIC MASTOCYTOSIS
     Dosage: 1 DF, Q12H
     Route: 065
  7. GLISULIN [Concomitant]
     Indication: TYPE 2 DIABETES MELLITUS
     Dosage: 750 MG, Q12H
     Route: 065
  8. CLONAZEPAM. [Concomitant]
     Active Substance: CLONAZEPAM
     Indication: PRODUCT USED FOR UNKNOWN INDICATION
     Dosage: 10 DROPS AT BEDTIME
     Route: 065
  9. PANTECTA [Concomitant]
     Active Substance: PANTOPRAZOLE SODIUM
     Indication: PRODUCT USED FOR UNKNOWN INDICATION
     Dosage: 1 DF, IN FAST
     Route: 065
  10. LACTULOSE. [Concomitant]
     Active Substance: LACTULOSE
     Indication: PRODUCT USED FOR UNKNOWN INDICATION
     Route: 065
  11. CLONIDINE. [Concomitant]
     Active Substance: CLONIDINE
     Indication: PRODUCT USED FOR UNKNOWN INDICATION
     Route: 065
  12. VITAMIN D [Concomitant]
     Active Substance: CHOLECALCIFEROL
     Indication: PRODUCT USED FOR UNKNOWN INDICATION
     Dosage: 3 DRP, UNK
     Route: 065
  13. PHARMATON [Concomitant]
     Active Substance: MINERALS\VITAMINS
     Indication: PRODUCT USED FOR UNKNOWN INDICATION
     Dosage: 1 DF, IN MORNING
     Route: 065
  14. CENTRUM [Concomitant]
     Active Substance: VITAMINS
     Indication: PRODUCT USED FOR UNKNOWN INDICATION
     Dosage: 1 DF, IN MORNING
     Route: 065
  15. FENTANYL. [Concomitant]
     Active Substance: FENTANYL
     Indication: PRODUCT USED FOR UNKNOWN INDICATION
     Dosage: 50 UG, Q72H
     Route: 065
  16. TRAMAL [Concomitant]
     Active Substance: TRAMADOL
     Indication: PRODUCT USED FOR UNKNOWN INDICATION
     Dosage: 20 DROPS EVERY 8 HOURS AS NEEDED
     Route: 065

REACTIONS (37)
  - Thrombocytopenia [Unknown]
  - Haemoglobin decreased [Unknown]
  - Vomiting [Unknown]
  - Neutropenia [Unknown]
  - Weight decreased [Unknown]
  - Dysstasia [Unknown]
  - Pyrexia [Unknown]
  - Abdominal pain [Unknown]
  - Petechiae [Unknown]
  - Somnolence [Unknown]
  - Anaemia [Unknown]
  - Leukopenia [Unknown]
  - Lymphocyte count decreased [Unknown]
  - Haematocrit abnormal [Unknown]
  - Pruritus [Unknown]
  - Disease progression [Unknown]
  - Drug intolerance [Unknown]
  - Blood glucose abnormal [Unknown]
  - Urticaria [Unknown]
  - Activated partial thromboplastin time abnormal [Unknown]
  - Tryptase increased [Unknown]
  - Splenomegaly [Unknown]
  - Bronchospasm [Unknown]
  - Mobility decreased [Unknown]
  - Insomnia [Unknown]
  - Anaphylactic reaction [Unknown]
  - Platelet count decreased [Unknown]
  - Anxiety [Unknown]
  - Hyperchlorhydria [Unknown]
  - Stress [Unknown]
  - Nausea [Unknown]
  - Diarrhoea [Unknown]
  - Systemic mastocytosis [Fatal]
  - Prothrombin level abnormal [Unknown]
  - International normalised ratio abnormal [Unknown]
  - Depression [Unknown]
  - Fatigue [Unknown]

NARRATIVE: CASE EVENT DATE: 20170821
